FAERS Safety Report 5044772-4 (Version None)
Quarter: 2006Q3

REPORT INFORMATION
  Report Type: 
  Country: None (occurrence: None)
  Receive Date: 20060707
  Receipt Date: 20060628
  Transmission Date: 20061208
  Serious: Yes (Other)
  Sender: FDA-Public Use
  Company Number: GB-JNJFOC-20060700015

PATIENT
  Sex: Female

DRUGS (2)
  1. TOPAMAX [Suspect]
     Indication: PROPHYLAXIS
     Route: 065
  2. OPIODS [Concomitant]
     Indication: PAIN

REACTIONS (2)
  - MIGRAINE [None]
  - MYOCLONUS [None]
